FAERS Safety Report 8606433-1 (Version None)
Quarter: 2012Q3

REPORT INFORMATION
  Report Type: 
  Country: None (occurrence: None)
  Receive Date: 20120820
  Receipt Date: 20120809
  Transmission Date: 20120928
  Serious: Yes (Other)
  Sender: FDA-Public Use
  Company Number: GB-ASTRAZENECA-2012SE31622

PATIENT
  Age: 30211 Day
  Sex: Male
  Weight: 61 kg

DRUGS (8)
  1. VITAMIN B-12 [Concomitant]
  2. CALCICHEW D3 [Concomitant]
     Indication: VITAMIN D DEFICIENCY
     Dates: start: 20110714
  3. SIMVASTATIN [Concomitant]
     Indication: BLOOD CHOLESTEROL ABNORMAL
     Dates: start: 20100604
  4. PROPRANOLOL [Concomitant]
     Indication: HYPERTENSION
     Dates: start: 20101018
  5. ZOLADEX [Suspect]
     Indication: PROSTATE CANCER
     Route: 058
     Dates: start: 20090101
  6. ASPIRIN [Concomitant]
  7. OMEPRAZOLE [Concomitant]
     Indication: GASTROOESOPHAGEAL REFLUX DISEASE
     Dates: start: 20100824
  8. RAMIPRIL [Concomitant]
     Indication: HYPERTENSION
     Dates: start: 20100604

REACTIONS (1)
  - HERPES ZOSTER [None]
